FAERS Safety Report 23144794 (Version 1)
Quarter: 2023Q4

REPORT INFORMATION
  Report Type: Spontaneous
  Country: US (occurrence: US)
  Receive Date: 20231103
  Receipt Date: 20231103
  Transmission Date: 20240110
  Serious: No
  Sender: FDA-Public Use
  Company Number: US-PFIZER INC-PV202300172087

PATIENT
  Age: 62 Year
  Sex: Female

DRUGS (1)
  1. IBRANCE [Suspect]
     Active Substance: PALBOCICLIB
     Indication: Ovarian cancer
     Dosage: 125 MG, CYCLIC (TAKE 1 TABLET BY MOUTH FOR 21 DAYS, THEN 7 DAYS OFF)

REACTIONS (2)
  - Off label use [Unknown]
  - Respiratory disorder [Recovering/Resolving]
